FAERS Safety Report 5599827-2 (Version None)
Quarter: 2008Q1

REPORT INFORMATION
  Report Type: 
  Country: None (occurrence: None)
  Receive Date: 20080118
  Receipt Date: 20080118
  Transmission Date: 20080703
  Serious: Yes (Hospitalization)
  Sender: FDA-Public Use
  Company Number: None

PATIENT
  Sex: Female
  Weight: 66 kg

DRUGS (2)
  1. CISPLATIN [Suspect]
     Dosage: 131 MG
     Dates: end: 20071127
  2. TAXOTERE [Suspect]
     Dosage: 131 MG
     Dates: end: 20071127

REACTIONS (6)
  - ASTHENIA [None]
  - DIARRHOEA [None]
  - DIVERTICULITIS [None]
  - EPISTAXIS [None]
  - HYPERTENSION [None]
  - NEUTROPHIL COUNT DECREASED [None]
